FAERS Safety Report 21138838 (Version 6)
Quarter: 2023Q1

REPORT INFORMATION
  Report Type: Spontaneous
  Country: US (occurrence: US)
  Receive Date: 20220727
  Receipt Date: 20230320
  Transmission Date: 20230418
  Serious: Yes (Other)
  Sender: FDA-Public Use
  Company Number: US-PFIZER INC-PV202200030772

PATIENT
  Age: 54 Year
  Sex: Female

DRUGS (2)
  1. XELJANZ XR [Suspect]
     Active Substance: TOFACITINIB CITRATE
     Dosage: UNK
     Dates: end: 202209
  2. XELJANZ XR [Suspect]
     Active Substance: TOFACITINIB CITRATE
     Dosage: UNK
     Dates: start: 202210

REACTIONS (9)
  - Pneumonia [Not Recovered/Not Resolved]
  - Headache [Recovered/Resolved]
  - Irritability [Recovering/Resolving]
  - Bronchitis [Not Recovered/Not Resolved]
  - Pharyngitis streptococcal [Unknown]
  - Cough [Not Recovered/Not Resolved]
  - Illness [Unknown]
  - Respiratory disorder [Unknown]
  - Influenza [Unknown]

NARRATIVE: CASE EVENT DATE: 20220101
